FAERS Safety Report 6711829-9 (Version None)
Quarter: 2010Q2

REPORT INFORMATION
  Report Type: 
  Country: None (occurrence: None)
  Receive Date: 20100505
  Receipt Date: 20100421
  Transmission Date: 20101027
  Serious: Yes (Hospitalization, Other)
  Sender: FDA-Public Use
  Company Number: US-ELI_LILLY_AND_COMPANY-US200701002459

PATIENT
  Sex: Female

DRUGS (7)
  1. FORTEO [Suspect]
     Indication: OSTEOPOROSIS
     Dosage: 20 UG, DAILY (1/D)
     Dates: start: 20030101, end: 20030101
  2. FORTEO [Suspect]
     Dosage: 20 UG, DAILY (1/D)
     Dates: start: 20061201
  3. OXYCODONE HCL [Concomitant]
     Indication: PAIN
  4. OSTEO BI-FLEX [Concomitant]
     Indication: BONE DENSITY DECREASED
  5. CALTRATE [Concomitant]
     Indication: BONE DENSITY DECREASED
     Dosage: UNK, UNK
  6. ALPRAZOLAM [Concomitant]
     Dosage: 1 MG, AS NEEDED
  7. ZOFRAN [Concomitant]
     Indication: NAUSEA
     Dosage: 4 MG, 3/D

REACTIONS (37)
  - ABDOMINAL PAIN UPPER [None]
  - AORTIC ANEURYSM [None]
  - ARTHRALGIA [None]
  - ASTHENIA [None]
  - BALANCE DISORDER [None]
  - BLADDER PROLAPSE [None]
  - BLOOD URINE PRESENT [None]
  - COLECTOMY [None]
  - CYSTITIS [None]
  - DIZZINESS [None]
  - FALL [None]
  - FIBROMYALGIA [None]
  - FOOT FRACTURE [None]
  - FRACTURED COCCYX [None]
  - GASTROINTESTINAL DISORDER [None]
  - GASTROOESOPHAGEAL REFLUX DISEASE [None]
  - GENERAL PHYSICAL CONDITION ABNORMAL [None]
  - HELICOBACTER GASTRITIS [None]
  - HIP FRACTURE [None]
  - HOSPITALISATION [None]
  - INFECTION [None]
  - INFLAMMATION [None]
  - INTERVERTEBRAL DISC DISORDER [None]
  - MEMORY IMPAIRMENT [None]
  - NAUSEA [None]
  - NON-CARDIAC CHEST PAIN [None]
  - OESOPHAGEAL SPASM [None]
  - PAIN [None]
  - SPINAL DISORDER [None]
  - SPINAL FRACTURE [None]
  - SURGERY [None]
  - URETHRAL DISCHARGE [None]
  - URETHRAL DISORDER [None]
  - VITAMIN D DECREASED [None]
  - VOMITING [None]
  - WALKING AID USER [None]
  - WRIST FRACTURE [None]
